FAERS Safety Report 10574554 (Version 2)
Quarter: 2014Q4

REPORT INFORMATION
  Report Type: Spontaneous
  Country: US (occurrence: US)
  Receive Date: 20141110
  Receipt Date: 20141117
  Transmission Date: 20150529
  Serious: Yes (Death, Life-Threatening, Hospitalization, Other)
  Sender: FDA-Public Use
  Company Number: US-009507513-1411USA003243

PATIENT
  Sex: Male
  Weight: 102.95 kg

DRUGS (4)
  1. JANUMET [Suspect]
     Active Substance: METFORMIN HYDROCHLORIDE\SITAGLIPTIN PHOSPHATE
     Dosage: 50/500 MG BID
     Route: 048
     Dates: start: 20100812, end: 20110110
  2. BYETTA [Suspect]
     Active Substance: EXENATIDE
     Indication: TYPE 2 DIABETES MELLITUS
     Dosage: 10 MICROGRAM, BID
     Route: 058
     Dates: start: 20121127, end: 20130509
  3. JANUMET [Suspect]
     Active Substance: METFORMIN HYDROCHLORIDE\SITAGLIPTIN PHOSPHATE
     Indication: TYPE 2 DIABETES MELLITUS
     Dosage: 50/1000 MG BID
     Route: 048
     Dates: start: 20110107, end: 20130116
  4. JANUMET XR [Suspect]
     Active Substance: METFORMIN HYDROCHLORIDE\SITAGLIPTIN PHOSPHATE
     Indication: TYPE 2 DIABETES MELLITUS
     Dosage: 50/1000 MG
     Route: 048
     Dates: start: 20120319, end: 20121018

REACTIONS (22)
  - Pulmonary mass [Unknown]
  - Adrenal adenoma [Unknown]
  - Lymphadenopathy [Unknown]
  - Emotional distress [Unknown]
  - Metastases to lung [Unknown]
  - Pulmonary embolism [Unknown]
  - Rhinoplasty [Unknown]
  - Metastases to peritoneum [Unknown]
  - Metastases to adrenals [Unknown]
  - Rotator cuff repair [Unknown]
  - Peritonitis bacterial [Unknown]
  - Death [Fatal]
  - Abdominal mass [Unknown]
  - Pyelocaliectasis [Unknown]
  - Renal cyst [Unknown]
  - Oedema peripheral [Not Recovered/Not Resolved]
  - Hypertension [Unknown]
  - Pancreatic carcinoma metastatic [Unknown]
  - Metastases to lymph nodes [Unknown]
  - Ileus [Unknown]
  - Cystocele repair [Unknown]
  - Metastases to liver [Unknown]

NARRATIVE: CASE EVENT DATE: 201106
